FAERS Safety Report 12675656 (Version 1)
Quarter: 2016Q3

REPORT INFORMATION
  Report Type: Spontaneous
  Country: US (occurrence: None)
  Receive Date: 20160822
  Receipt Date: 20160822
  Transmission Date: 20161109
  Serious: Yes (Life-Threatening, Other)
  Sender: FDA-Public Use
  Company Number: None

PATIENT
  Age: 61 Year
  Sex: Female
  Weight: 77.11 kg

DRUGS (1)
  1. LOSARTAN, 50 MG TORRENT [Suspect]
     Active Substance: LOSARTAN
     Indication: HYPERTENSION
     Route: 048
     Dates: start: 20070808

REACTIONS (4)
  - Blood pressure increased [None]
  - Drug ineffective [None]
  - Product substitution issue [None]
  - Angina pectoris [None]

NARRATIVE: CASE EVENT DATE: 20160820
